FAERS Safety Report 15640768 (Version 1)
Quarter: 2018Q4

REPORT INFORMATION
  Report Type: Spontaneous
  Country: GB (occurrence: GB)
  Receive Date: 20181120
  Receipt Date: 20181120
  Transmission Date: 20190205
  Serious: Yes (Other)
  Sender: FDA-Public Use
  Company Number: GB-ESPERO PHARMACEUTICALS-ESP201811-000045

PATIENT
  Weight: .62 kg

DRUGS (1)
  1. NITROGLYCERIN. [Suspect]
     Active Substance: NITROGLYCERIN
     Dosage: PATCHES WERE CHANGED TWICE DAILY

REACTIONS (3)
  - Necrosis [Recovered/Resolved with Sequelae]
  - Ischaemia [Recovering/Resolving]
  - Methaemoglobinaemia [Recovering/Resolving]
